FAERS Safety Report 4980680-2 (Version None)
Quarter: 2006Q2

REPORT INFORMATION
  Report Type: 
  Country: None (occurrence: None)
  Receive Date: 20060424
  Receipt Date: 20051019
  Transmission Date: 20061013
  Serious: Yes (Hospitalization)
  Sender: FDA-Public Use
  Company Number: US-MERCK-0510USA08100

PATIENT
  Age: 65 Year
  Sex: Female
  Weight: 75 kg

DRUGS (12)
  1. VIOXX [Suspect]
     Indication: ARTHRITIS
     Route: 048
     Dates: start: 20010305, end: 20040526
  2. VERAPAMIL MSD LP [Concomitant]
     Route: 048
  3. ASPIRIN [Concomitant]
     Route: 048
  4. DYAZIDE [Concomitant]
     Indication: HYPERTENSION
     Route: 065
  5. DYAZIDE [Concomitant]
     Indication: DEHYDRATION
     Route: 065
  6. COUMADIN [Concomitant]
     Indication: ARTERIOSCLEROSIS
     Route: 065
     Dates: start: 20031027
  7. COUMADIN [Concomitant]
     Indication: ANTICOAGULANT THERAPY
     Route: 065
     Dates: start: 20031027
  8. COREG [Concomitant]
     Route: 048
  9. ZYRTEC [Concomitant]
     Route: 048
  10. PLAVIX [Concomitant]
     Route: 048
  11. NITROSTAT [Concomitant]
     Route: 060
  12. IMDUR [Concomitant]
     Route: 048

REACTIONS (8)
  - ANGINA PECTORIS [None]
  - ATRIAL FIBRILLATION [None]
  - ATRIAL FLUTTER [None]
  - CARDIAC MURMUR [None]
  - CORONARY ARTERY DISEASE [None]
  - CORONARY ARTERY STENOSIS [None]
  - EXTRASYSTOLES [None]
  - SUPRAVENTRICULAR TACHYCARDIA [None]
